FAERS Safety Report 4479442-4 (Version None)
Quarter: 2004Q4

REPORT INFORMATION
  Report Type: 
  Country: None (occurrence: None)
  Receive Date: 20041020
  Receipt Date: 20041015
  Transmission Date: 20050328
  Serious: Yes (Other)
  Sender: FDA-Public Use
  Company Number: 200417915US

PATIENT
  Sex: Female

DRUGS (2)
  1. LANTUS [Suspect]
     Dosage: DOSE: UNKNOWN
  2. LASIX [Suspect]
     Dosage: DOSE: UNKNOWN

REACTIONS (1)
  - PANCREATIC DISORDER [None]
